FAERS Safety Report 9804005 (Version 2)
Quarter: 2014Q1

REPORT INFORMATION
  Report Type: Spontaneous
  Country: US (occurrence: US)
  Receive Date: 20140108
  Receipt Date: 20140228
  Transmission Date: 20141002
  Serious: Yes (Hospitalization, Other)
  Sender: FDA-Public Use
  Company Number: US-PFIZER INC-2014004240

PATIENT
  Age: 64 Year
  Sex: Male

DRUGS (3)
  1. RAPAMUNE [Suspect]
     Indication: PROPHYLAXIS AGAINST TRANSPLANT REJECTION
     Dosage: UNK
     Route: 048
  2. RAPAMUNE [Suspect]
     Dosage: 1 MG, 3X/DAY
     Route: 048
  3. RAPAMUNE [Suspect]
     Dosage: 2 MG, DAILY (TAKE TWO 1MG TABLETS DAILY)
     Dates: start: 20110714

REACTIONS (5)
  - Pneumonia [Unknown]
  - Convulsion [Unknown]
  - Liver disorder [Unknown]
  - Amnesia [Not Recovered/Not Resolved]
  - Off label use [Unknown]
